FAERS Safety Report 12538899 (Version 1)
Quarter: 2016Q3

REPORT INFORMATION
  Report Type: Spontaneous
  Country: US (occurrence: None)
  Receive Date: 20160707
  Receipt Date: 20160707
  Transmission Date: 20161109
  Serious: Yes (Death)
  Sender: FDA-Public Use
  Company Number: None

PATIENT
  Age: 77 Year
  Sex: Male
  Weight: 102.1 kg

DRUGS (11)
  1. ASPIRIN. [Concomitant]
     Active Substance: ASPIRIN
  2. ENALAPRIL [Concomitant]
     Active Substance: ENALAPRIL
  3. VISIPAQUE [Suspect]
     Active Substance: IODIXANOL
     Indication: CATHETERISATION CARDIAC
     Dosage: 115 ML TOTAL MINUTES INTRA-ARTERIAL
     Route: 013
     Dates: start: 20160517
  4. LIDOCAINE. [Concomitant]
     Active Substance: LIDOCAINE
  5. FENTANYL. [Concomitant]
     Active Substance: FENTANYL
  6. NITROGLYCERIN. [Concomitant]
     Active Substance: NITROGLYCERIN
  7. SIMVASTATIN. [Concomitant]
     Active Substance: SIMVASTATIN
  8. MIDAZOLAM [Concomitant]
     Active Substance: MIDAZOLAM\MIDAZOLAM HYDROCHLORIDE
  9. HEPARIN [Concomitant]
     Active Substance: HEPARIN SODIUM
  10. HYDRALAZINE [Concomitant]
     Active Substance: HYDRALAZINE HYDROCHLORIDE
  11. SODIUM BICARBONATE. [Concomitant]
     Active Substance: SODIUM BICARBONATE

REACTIONS (1)
  - Cardio-respiratory arrest [None]

NARRATIVE: CASE EVENT DATE: 20160517
